FAERS Safety Report 13165372 (Version 2)
Quarter: 2017Q1

REPORT INFORMATION
  Report Type: Spontaneous
  Country: FR (occurrence: FR)
  Receive Date: 20170131
  Receipt Date: 20170228
  Transmission Date: 20170428
  Serious: Yes (Hospitalization, Other)
  Sender: FDA-Public Use
  Company Number: FR-BAXTER-2016BAX060690

PATIENT
  Age: 47 Year
  Sex: Male

DRUGS (17)
  1. BACTRIM [Concomitant]
     Active Substance: SULFAMETHOXAZOLE\TRIMETHOPRIM
     Indication: DRUG THERAPY
     Route: 065
  2. LEDERFOLINE [Concomitant]
     Active Substance: LEUCOVORIN CALCIUM
     Indication: DRUG THERAPY
     Route: 065
  3. ENDOXAN 1000 MG, POUDRE POUR SOLUTION INJECTABLE [Suspect]
     Active Substance: CYCLOPHOSPHAMIDE
     Indication: DIFFUSE LARGE B-CELL LYMPHOMA
     Dosage: 7 COURSES OF RCHOP
     Route: 042
     Dates: start: 20160712, end: 20161115
  4. MABTHERA [Suspect]
     Active Substance: RITUXIMAB
     Dosage: LAST COURSE
     Route: 058
  5. VINCRISTINE [Suspect]
     Active Substance: VINCRISTINE
     Dosage: LAST COURSE
     Route: 042
  6. PREDNISONE. [Suspect]
     Active Substance: PREDNISONE
     Indication: DIFFUSE LARGE B-CELL LYMPHOMA
     Dosage: 7 COURSES OF RCHOP
     Route: 048
     Dates: start: 20160712, end: 20161115
  7. INEXIUM [Concomitant]
     Active Substance: ESOMEPRAZOLE
     Indication: DRUG THERAPY
     Route: 065
  8. OXYCONTIN [Concomitant]
     Active Substance: OXYCODONE HYDROCHLORIDE
     Indication: DRUG THERAPY
     Route: 065
  9. OXYNORMORO [Concomitant]
     Active Substance: OXYCODONE
     Indication: DRUG THERAPY
     Route: 065
  10. MABTHERA [Suspect]
     Active Substance: RITUXIMAB
     Indication: DIFFUSE LARGE B-CELL LYMPHOMA
     Dosage: 7 COURSES OF RCHOP
     Route: 058
     Dates: start: 20160802, end: 20161115
  11. ZARZIO [Concomitant]
     Active Substance: FILGRASTIM
     Indication: DRUG THERAPY
     Route: 065
  12. DOXORUBICIN [Suspect]
     Active Substance: DOXORUBICIN
     Indication: DIFFUSE LARGE B-CELL LYMPHOMA
     Dosage: 7 COURSES OF RCHOP
     Route: 042
     Dates: start: 20160712, end: 20161115
  13. PREDNISONE. [Suspect]
     Active Substance: PREDNISONE
     Dosage: LAST COURSE
     Route: 048
  14. ZELITREX [Concomitant]
     Active Substance: VALACYCLOVIR HYDROCHLORIDE
     Indication: DRUG THERAPY
     Route: 065
  15. PRIMPERAN [Concomitant]
     Active Substance: METOCLOPRAMIDE HYDROCHLORIDE
     Indication: DRUG THERAPY
     Route: 065
  16. AMITRIPTYLINE [Concomitant]
     Active Substance: AMITRIPTYLINE
     Indication: DRUG THERAPY
     Route: 065
  17. VINCRISTINE [Suspect]
     Active Substance: VINCRISTINE
     Indication: DIFFUSE LARGE B-CELL LYMPHOMA
     Dosage: 7 COURSES OF RCHOP
     Route: 042
     Dates: start: 20160712, end: 20161115

REACTIONS (7)
  - Acute kidney injury [Recovering/Resolving]
  - Pyelocaliectasis [Unknown]
  - Cystitis haemorrhagic [Recovering/Resolving]
  - Polyuria [Unknown]
  - Urinary tract disorder [Unknown]
  - Haemorrhage urinary tract [Recovering/Resolving]
  - Escherichia urinary tract infection [Recovering/Resolving]

NARRATIVE: CASE EVENT DATE: 201611
